FAERS Safety Report 24050789 (Version 1)
Quarter: 2024Q3

REPORT INFORMATION
  Report Type: Other
  Country: CA (occurrence: CA)
  Receive Date: 20240704
  Receipt Date: 20240704
  Transmission Date: 20241017
  Serious: Yes (Other)
  Sender: BIOCON
  Company Number: CA-BIOCON BIOLOGICS LIMITED-BBL2024004783

PATIENT

DRUGS (4)
  1. HULIO [Suspect]
     Active Substance: ADALIMUMAB-FKJP
     Indication: Crohn^s disease
     Dosage: 40 MILLIGRAM, Q2W (1 EVERY 2 WEEKS)
     Route: 058
  2. HULIO [Suspect]
     Active Substance: ADALIMUMAB-FKJP
     Dosage: 40 MILLIGRAM, QW (1 EVERY 1 WEEKS)
     Route: 065
  3. HULIO [Suspect]
     Active Substance: ADALIMUMAB-FKJP
     Dosage: 40 MILLIGRAM, Q2W (1 EVERY 2 WEEKS)
     Route: 058
  4. HULIO [Suspect]
     Active Substance: ADALIMUMAB-FKJP
     Dosage: 40 MILLIGRAM, Q2W (1 EVERY 2 WEEKS)
     Route: 058

REACTIONS (7)
  - Drug level decreased [Unknown]
  - Crohn^s disease [Unknown]
  - Pyrexia [Unknown]
  - Anaemia [Unknown]
  - Haematochezia [Unknown]
  - Headache [Unknown]
  - Inappropriate schedule of product administration [Unknown]
